FAERS Safety Report 10798298 (Version 4)
Quarter: 2015Q2

REPORT INFORMATION
  Report Type: Spontaneous
  Country: US (occurrence: US)
  Receive Date: 20150216
  Receipt Date: 20150408
  Transmission Date: 20150821
  Serious: No
  Sender: FDA-Public Use
  Company Number: US-PFIZER INC-2015059188

PATIENT
  Age: 81 Year
  Sex: Female

DRUGS (1)
  1. LYRICA [Suspect]
     Active Substance: PREGABALIN
     Indication: LUMBAR RADICULOPATHY
     Dosage: 75 MG, TWICE DAILY
     Route: 048
     Dates: start: 20130102

REACTIONS (3)
  - Pain [Unknown]
  - Pain in extremity [Unknown]
  - Insomnia [Unknown]
